FAERS Safety Report 10529766 (Version 1)
Quarter: 2014Q4

REPORT INFORMATION
  Report Type: Spontaneous
  Country: US (occurrence: None)
  Receive Date: 20141020
  Receipt Date: 20141020
  Transmission Date: 20150528
  Serious: Yes (Life-Threatening, Hospitalization, Disabling, Other)
  Sender: FDA-Public Use
  Company Number: None

PATIENT
  Age: 84 Year
  Sex: Male

DRUGS (12)
  1. RITE AID PHARMACY STOOL SOFTENER DOCUSATE SODIUM [Suspect]
     Active Substance: DOCUSATE SODIUM
     Indication: MUSCLE SPASMS
     Dosage: SODIUM 5 MG?2 PILLS (ONLY 1 TAKEN?1 TO 3 PILLS ?BEDTIME RECOMANDED ?BY MOUTH?1 ONLY
     Route: 048
  2. OMEPRAZOLE. [Concomitant]
     Active Substance: OMEPRAZOLE
  3. FLOMAX [Concomitant]
     Active Substance: TAMSULOSIN HYDROCHLORIDE
  4. EXCELON PATCH [Concomitant]
  5. ZEGERID OTC [Concomitant]
     Active Substance: OMEPRAZOLE\SODIUM BICARBONATE
  6. ISOSOBRINE MN ER [Concomitant]
  7. CYSTIN [Concomitant]
  8. ASPIRIN. [Concomitant]
     Active Substance: ASPIRIN
  9. RITE AID PHARMACY STOOL SOFTENER DOCUSATE SODIUM [Suspect]
     Active Substance: DOCUSATE SODIUM
     Indication: CONSTIPATION
     Dosage: SODIUM 5 MG?2 PILLS (ONLY 1 TAKEN?1 TO 3 PILLS ?BEDTIME RECOMANDED ?BY MOUTH?1 ONLY
     Route: 048
  10. NAMENDA XR [Concomitant]
     Active Substance: MEMANTINE HYDROCHLORIDE
  11. URICALM [Concomitant]
  12. FUROSEMIDE. [Concomitant]
     Active Substance: FUROSEMIDE

REACTIONS (2)
  - Unevaluable event [None]
  - Product label issue [None]
